FAERS Safety Report 9460888 (Version 1)
Quarter: 2013Q3

REPORT INFORMATION
  Report Type: Spontaneous
  Country: US (occurrence: US)
  Receive Date: 20130816
  Receipt Date: 20130816
  Transmission Date: 20140515
  Serious: No
  Sender: FDA-Public Use
  Company Number: US-B.I. PHARMACEUTICALS,INC./RIDGEFIELD-2013-BI-13991BP

PATIENT
  Age: 53 Year
  Sex: Female

DRUGS (10)
  1. MICARDIS [Suspect]
     Indication: HYPERTENSION
     Dosage: 20 MG
     Route: 048
     Dates: start: 2011
  2. MICARDIS [Suspect]
     Dosage: 40 MG
     Route: 048
     Dates: start: 2011
  3. ADVAIR [Concomitant]
     Indication: ASTHMA
     Dosage: STRENGTH:500/50MG; DOSE: 1000/100 MG
     Route: 055
  4. QVAR [Concomitant]
     Indication: ASTHMA
     Dosage: 40 MCG
     Route: 055
  5. ALLEGRA [Concomitant]
     Indication: ASTHMA
     Dosage: 180 MG
     Route: 048
  6. PRESCRIPTION ZANTAC [Concomitant]
     Indication: RUBBER SENSITIVITY
     Dosage: 300 MG
     Route: 048
  7. CROMOLYN NEBULIZER [Concomitant]
     Indication: ASTHMA
     Route: 055
  8. BENADRYL [Concomitant]
     Indication: RUBBER SENSITIVITY
     Route: 048
  9. DECADRON [Concomitant]
     Dosage: FORM: INTRAMUSCULAR
     Route: 030
  10. EPIPEN [Concomitant]
     Indication: RUBBER SENSITIVITY
     Dosage: FORM: INTRAMUSCULAR
     Route: 030

REACTIONS (3)
  - Blood pressure increased [Recovered/Resolved]
  - Rotator cuff syndrome [Recovered/Resolved]
  - Rotator cuff syndrome [Recovered/Resolved]
